FAERS Safety Report 6677006-5 (Version None)
Quarter: 2010Q2

REPORT INFORMATION
  Report Type: 
  Country: None (occurrence: None)
  Receive Date: 20100412
  Receipt Date: 20100329
  Transmission Date: 20101027
  Serious: Yes (Disabling)
  Sender: FDA-Public Use
  Company Number: ES-ELI_LILLY_AND_COMPANY-ES201003008115

PATIENT
  Sex: Female
  Weight: 91 kg

DRUGS (9)
  1. FORTEO [Suspect]
     Dosage: 20 UG, DAILY (1/D)
     Route: 058
     Dates: start: 20091001
  2. TRANKIMAZIN [Concomitant]
     Dosage: 1 MG 2 C, UNK
     Route: 048
  3. ADOFEN [Concomitant]
     Dosage: 20 MG 1C, UNK
     Route: 048
  4. ZALDIAR [Concomitant]
     Dosage: 37.5 MG 2C, UNK
     Route: 048
  5. NEURONTIN [Concomitant]
     Dosage: 300 MG 1C, UNK
     Route: 048
  6. DEPRELIO [Concomitant]
     Dosage: 25 MG 1C, UNK
     Route: 048
  7. NEOBRUFEN [Concomitant]
     Dosage: 800 MG 2C, UNK
     Route: 048
  8. OMEPRAZOLE [Concomitant]
     Dosage: 20 MG 1C, UNK
     Route: 048
  9. SEDOTIME [Concomitant]
     Dosage: 45 MG 1C, UNK
     Route: 048

REACTIONS (5)
  - BACK PAIN [None]
  - CONSTIPATION [None]
  - DIZZINESS [None]
  - HEADACHE [None]
  - OFF LABEL USE [None]
